FAERS Safety Report 15943158 (Version 3)
Quarter: 2019Q3

REPORT INFORMATION
  Report Type: Spontaneous
  Country: US (occurrence: US)
  Receive Date: 20190210
  Receipt Date: 20190917
  Transmission Date: 20191004
  Serious: Yes (Other)
  Sender: FDA-Public Use
  Company Number: US-ASTRAZENECA-2018SF22603

PATIENT
  Age: 20299 Day
  Sex: Female

DRUGS (36)
  1. NEXIUM [Suspect]
     Active Substance: ESOMEPRAZOLE MAGNESIUM
     Indication: GASTROOESOPHAGEAL REFLUX DISEASE
     Route: 048
     Dates: start: 20120101
  2. MULTIVITAMIN [Concomitant]
     Active Substance: VITAMINS
  3. TACROLIMUS. [Concomitant]
     Active Substance: TACROLIMUS
  4. VITAMIN E [Concomitant]
     Active Substance: .ALPHA.-TOCOPHEROL
  5. COMBIVENT [Concomitant]
     Active Substance: ALBUTEROL SULFATE\IPRATROPIUM BROMIDE
  6. CLARITIN-D NOS [Concomitant]
     Active Substance: LORATADINE\PSEUDOEPHEDRINE SULFATE
  7. BROVANA [Concomitant]
     Active Substance: ARFORMOTEROL TARTRATE
  8. SINGULAIR [Concomitant]
     Active Substance: MONTELUKAST SODIUM
  9. SPIRIVA [Concomitant]
     Active Substance: TIOTROPIUM BROMIDE MONOHYDRATE
  10. MAGNESIUM SULPHATE [Concomitant]
     Active Substance: MAGNESIUM SULFATE
  11. NORVASC [Concomitant]
     Active Substance: AMLODIPINE BESYLATE
     Indication: HYPERTENSION
  12. CLONIDINE HCL [Concomitant]
     Active Substance: CLONIDINE HYDROCHLORIDE
  13. METOPROLOL SUCCINATE. [Concomitant]
     Active Substance: METOPROLOL SUCCINATE
     Indication: HYPERTENSION
  14. XANAX [Concomitant]
     Active Substance: ALPRAZOLAM
  15. VITAMIN B3 [Concomitant]
     Active Substance: NIACIN
  16. MERREM [Concomitant]
     Active Substance: MEROPENEM
  17. AZITHROMYCIN ANHYDROUS. [Concomitant]
     Active Substance: AZITHROMYCIN ANHYDROUS
  18. VITAMIN D3 [Concomitant]
     Active Substance: CHOLECALCIFEROL
  19. ALBUTEROL. [Concomitant]
     Active Substance: ALBUTEROL
  20. CALCIUM-VITAMIN D [Concomitant]
     Active Substance: CALCIUM\VITAMIN D
  21. NEXIUM [Suspect]
     Active Substance: ESOMEPRAZOLE MAGNESIUM
     Indication: GASTROOESOPHAGEAL REFLUX DISEASE
     Route: 048
     Dates: start: 20120101, end: 20140101
  22. MAGNESIUM OXIDE. [Concomitant]
     Active Substance: MAGNESIUM OXIDE
  23. GINGER. [Concomitant]
     Active Substance: GINGER
  24. VANCOMYCIN [Concomitant]
     Active Substance: VANCOMYCIN
  25. PROBIOTIC [Concomitant]
     Active Substance: PROBIOTICS NOS
  26. SUMATRIPTAN SUCCINATE. [Concomitant]
     Active Substance: SUMATRIPTAN SUCCINATE
  27. BACTRIM DS [Concomitant]
     Active Substance: SULFAMETHOXAZOLE\TRIMETHOPRIM
  28. CHLORTHALIDONE. [Concomitant]
     Active Substance: CHLORTHALIDONE
  29. ASPIRIN. [Concomitant]
     Active Substance: ASPIRIN
  30. MORPHINE SULPHATE [Concomitant]
     Active Substance: MORPHINE SULFATE
  31. IPRATROPIUM [Concomitant]
     Active Substance: IPRATROPIUM
  32. FUROSEMIDE. [Concomitant]
     Active Substance: FUROSEMIDE
  33. ACYCLOVIR. [Concomitant]
     Active Substance: ACYCLOVIR
  34. LISINOPRIL. [Concomitant]
     Active Substance: LISINOPRIL
     Indication: HYPERTENSION
  35. TYLENOL [Concomitant]
     Active Substance: ACETAMINOPHEN
  36. CALCIUM [Concomitant]
     Active Substance: CALCIUM

REACTIONS (2)
  - Chronic kidney disease [Not Recovered/Not Resolved]
  - Acute kidney injury [Not Recovered/Not Resolved]

NARRATIVE: CASE EVENT DATE: 20151218
